FAERS Safety Report 11930544 (Version 1)
Quarter: 2016Q1

REPORT INFORMATION
  Report Type: Spontaneous
  Country: PL (occurrence: PL)
  Receive Date: 20160120
  Receipt Date: 20160120
  Transmission Date: 20160526
  Serious: Yes (Hospitalization)
  Sender: FDA-Public Use
  Company Number: PL-ELI_LILLY_AND_COMPANY-PL201601006442

PATIENT
  Age: 62 Year
  Sex: Female
  Weight: 75 kg

DRUGS (2)
  1. HUMALOG MIX75/25 [Suspect]
     Active Substance: INSULIN LISPRO
     Dosage: 10 U, EACH EVENING
     Route: 065
     Dates: start: 2014
  2. HUMALOG MIX75/25 [Suspect]
     Active Substance: INSULIN LISPRO
     Indication: LATENT AUTOIMMUNE DIABETES IN ADULTS
     Dosage: 22 U, EACH MORNING
     Route: 065
     Dates: start: 2014

REACTIONS (3)
  - Weight increased [Unknown]
  - Glycosylated haemoglobin increased [Unknown]
  - Diabetes mellitus inadequate control [Unknown]
